FAERS Safety Report 7294775-4 (Version None)
Quarter: 2011Q1

REPORT INFORMATION
  Report Type: 
  Country: None (occurrence: None)
  Receive Date: 20110216
  Receipt Date: 20110211
  Transmission Date: 20110831
  Serious: Yes (Death)
  Sender: FDA-Public Use
  Company Number: CN-ASTELLAS-2011US000620

PATIENT
  Age: 54 Year
  Sex: Male

DRUGS (7)
  1. VORICONAZOLE [Concomitant]
     Indication: PULMONARY MYCOSIS
     Dosage: UNK
     Route: 065
  2. AMBISOME [Suspect]
     Indication: CEREBRAL ASPERGILLOSIS
  3. CASPOFUNGIN [Concomitant]
     Indication: PULMONARY MYCOSIS
     Dosage: UNK
     Route: 065
  4. AMBISOME [Suspect]
     Indication: BRONCHOPULMONARY ASPERGILLOSIS
     Dosage: UNK
     Route: 065
  5. MOXIFLOXACIN HYDROCHLORIDE [Concomitant]
     Indication: PNEUMONIA ASPIRATION
     Dosage: UNK
     Route: 042
  6. TAZOCIN [Concomitant]
     Indication: PNEUMONIA ASPIRATION
     Dosage: UNK
     Route: 042
  7. METRONIDAZOLE [Concomitant]
     Indication: PNEUMONIA ASPIRATION
     Dosage: UNK
     Route: 042

REACTIONS (3)
  - CEREBRAL ASPERGILLOSIS [None]
  - DRUG INEFFECTIVE [None]
  - BRONCHOPULMONARY ASPERGILLOSIS [None]
